FAERS Safety Report 4965561-2 (Version None)
Quarter: 2006Q1

REPORT INFORMATION
  Report Type: 
  Country: None (occurrence: None)
  Receive Date: 20060201
  Receipt Date: 20051017
  Transmission Date: 20060701
  Serious: No
  Sender: FDA-Public Use
  Company Number: 2005PV003237

PATIENT
  Age: 57 Year
  Sex: Female
  Weight: 85.7298 kg

DRUGS (12)
  1. BYETTA [Suspect]
     Indication: DIABETES MELLITUS NON-INSULIN-DEPENDENT
     Dosage: 5 MCG; BID; SC;  5 MCG; QD; SC
     Route: 058
     Dates: start: 20050101, end: 20050101
  2. BYETTA [Suspect]
     Indication: DIABETES MELLITUS NON-INSULIN-DEPENDENT
     Dosage: 5 MCG; BID; SC;  5 MCG; QD; SC
     Route: 058
     Dates: start: 20051004, end: 20051018
  3. HUMATROPE [Concomitant]
  4. ACTOS [Concomitant]
  5. DOSTINEX [Concomitant]
  6. DIOVAN [Concomitant]
  7. ZETIA [Concomitant]
  8. GLUCOPHAGE [Concomitant]
  9. SYNTHROID [Concomitant]
  10. ACTONEL [Concomitant]
  11. FUROSEMIDE [Concomitant]
  12. AVANDIA [Concomitant]

REACTIONS (4)
  - HYPERSENSITIVITY [None]
  - PRURITUS GENERALISED [None]
  - SKIN HAEMORRHAGE [None]
  - URTICARIA [None]
